FAERS Safety Report 16404112 (Version 1)
Quarter: 2019Q3

REPORT INFORMATION
  Report Type: Spontaneous
  Country: US (occurrence: US)
  Receive Date: 20190606
  Receipt Date: 20190606
  Transmission Date: 20191004
  Serious: Yes (Life-Threatening)
  Sender: FDA-Public Use
  Company Number: None

PATIENT
  Age: 45 Year
  Sex: Female
  Weight: 97.2 kg

DRUGS (17)
  1. MORPHINE SULFATE. [Concomitant]
     Active Substance: MORPHINE SULFATE
  2. TRINTELLIX [Concomitant]
     Active Substance: VORTIOXETINE HYDROBROMIDE
  3. ATORVASTATIN [Concomitant]
     Active Substance: ATORVASTATIN
  4. GAS RELIEF [Concomitant]
     Active Substance: DIMETHICONE
  5. DOXEPIN [Concomitant]
     Active Substance: DOXEPIN
  6. FISH OIL CAPS [Concomitant]
  7. RITUXAN [Suspect]
     Active Substance: RITUXIMAB
     Indication: RHEUMATOID ARTHRITIS
     Route: 042
     Dates: start: 20181206, end: 20190606
  8. PREDNISONE. [Concomitant]
     Active Substance: PREDNISONE
  9. ALPRAZOLAM. [Concomitant]
     Active Substance: ALPRAZOLAM
  10. ESOMEPERAZOLE [Concomitant]
  11. INSULIN VIA PUMP [Concomitant]
  12. STOOL SOFTENER (DOCUSATE) [Concomitant]
     Active Substance: DOCUSATE
  13. HYDROXYZINE [Concomitant]
     Active Substance: HYDROXYZINE HYDROCHLORIDE
  14. LEVOXYL [Concomitant]
     Active Substance: LEVOTHYROXINE SODIUM
  15. VITAMIN D 500IU [Concomitant]
  16. METOPROLOL. [Concomitant]
     Active Substance: METOPROLOL
  17. LISINOPRIL. [Concomitant]
     Active Substance: LISINOPRIL

REACTIONS (3)
  - Pharyngeal swelling [None]
  - Anaphylactic reaction [None]
  - Nausea [None]

NARRATIVE: CASE EVENT DATE: 20190606
